FAERS Safety Report 4821782-0 (Version None)
Quarter: 2005Q4

REPORT INFORMATION
  Report Type: 
  Country: None (occurrence: None)
  Receive Date: 20051103
  Receipt Date: 20051031
  Transmission Date: 20060501
  Serious: Yes (Hospitalization, Other)
  Sender: FDA-Public Use
  Company Number: 200511269BWH

PATIENT
  Sex: Male

DRUGS (1)
  1. TRASYLOL [Suspect]
     Indication: CORONARY ARTERY SURGERY

REACTIONS (8)
  - ANTIBODY TEST POSITIVE [None]
  - EJECTION FRACTION DECREASED [None]
  - ELECTROCARDIOGRAM ST SEGMENT ABNORMAL [None]
  - HAEMODYNAMIC INSTABILITY [None]
  - PLATELET COUNT DECREASED [None]
  - POST PROCEDURAL COMPLICATION [None]
  - VASCULAR GRAFT OCCLUSION [None]
  - VENOUS OCCLUSION [None]
